FAERS Safety Report 5703413-0 (Version None)
Quarter: 2008Q2

REPORT INFORMATION
  Report Type: 
  Country: None (occurrence: None)
  Receive Date: 20080411
  Receipt Date: 20080331
  Transmission Date: 20081010
  Serious: Yes (Other)
  Sender: FDA-Public Use
  Company Number: US-PFIZER INC-2008029092

PATIENT
  Sex: Male

DRUGS (1)
  1. CHANTIX [Suspect]
     Indication: SMOKING CESSATION THERAPY
     Dates: start: 20080225, end: 20080303

REACTIONS (7)
  - CONFUSIONAL STATE [None]
  - FATIGUE [None]
  - HALLUCINATION [None]
  - INSOMNIA [None]
  - PAIN [None]
  - RENAL PAIN [None]
  - STOMACH DISCOMFORT [None]
